FAERS Safety Report 23793099 (Version 1)
Quarter: 2024Q2

REPORT INFORMATION
  Report Type: Spontaneous
  Country: CN (occurrence: CN)
  Receive Date: 20240429
  Receipt Date: 20240429
  Transmission Date: 20240716
  Serious: No
  Sender: FDA-Public Use
  Company Number: CN-ALKEM LABORATORIES LIMITED-CN-ALKEM-2024-03568

PATIENT
  Age: 52 Year
  Sex: Male

DRUGS (10)
  1. ATORVASTATIN CALCIUM [Interacting]
     Active Substance: ATORVASTATIN CALCIUM
     Indication: Product used for unknown indication
     Dosage: 20 MILLIGRAM, QD (TABLET)
     Route: 065
  2. DABIGATRAN ETEXILATE MESYLATE [Interacting]
     Active Substance: DABIGATRAN ETEXILATE MESYLATE
     Indication: Product used for unknown indication
     Dosage: 110 MILLIGRAM, BID (CAPSULE)
     Route: 065
  3. ASPIRIN [Concomitant]
     Active Substance: ASPIRIN
     Indication: Thrombosis
     Dosage: 0.1 GRAM, QD (ENTERIC-COATED TABLETS)
     Route: 065
  4. CLOPIDOGREL BISULFATE [Concomitant]
     Active Substance: CLOPIDOGREL BISULFATE
     Indication: Thrombosis
     Dosage: 75 MILLIGRAM, QD
     Route: 065
  5. ENOXAPARIN [Concomitant]
     Active Substance: ENOXAPARIN
     Indication: Thrombosis
     Dosage: 60 MILLIGRAM, BID
     Route: 065
  6. METOPROLOL SUCCINATE [Concomitant]
     Active Substance: METOPROLOL SUCCINATE
     Indication: Product used for unknown indication
     Dosage: 47.5 MILLIGRAM, QD
     Route: 065
  7. RABEPRAZOLE [Concomitant]
     Active Substance: RABEPRAZOLE
     Indication: Product used for unknown indication
     Dosage: 10 MILLIGRAM, QD
     Route: 065
  8. SACUBITRIL\VALSARTAN [Concomitant]
     Active Substance: SACUBITRIL\VALSARTAN
     Indication: Product used for unknown indication
     Dosage: 50 MILLIGRAM, BID
     Route: 065
  9. Tongxinluo [Concomitant]
     Indication: Product used for unknown indication
     Dosage: 4 DOSAGE FORM, TID
     Route: 065
  10. WARFARIN [Concomitant]
     Active Substance: WARFARIN
     Indication: Acute myocardial infarction
     Dosage: 3 MILLIGRAM, BID
     Route: 048

REACTIONS (1)
  - Drug interaction [Unknown]
